FAERS Safety Report 6883226-7 (Version None)
Quarter: 2010Q3

REPORT INFORMATION
  Report Type: 
  Country: None (occurrence: None)
  Receive Date: 20100727
  Receipt Date: 20091223
  Transmission Date: 20110219
  Serious: Yes (Hospitalization, Disabling, Other)
  Sender: FDA-Public Use
  Company Number: US-PFIZER INC-2005069202

PATIENT
  Sex: Male
  Weight: 84 kg

DRUGS (8)
  1. CELEBREX [Suspect]
     Indication: BACK PAIN
     Dosage: 200 MG, 2X/DAY
     Route: 048
     Dates: end: 20020101
  2. CELEBREX [Suspect]
     Indication: ARTHRITIS
  3. ZOCOR [Concomitant]
     Route: 048
  4. OXYCOD [Concomitant]
     Route: 048
  5. ACETYLSALICYLIC ACID [Concomitant]
     Route: 048
  6. ZANTAC [Concomitant]
     Route: 065
  7. ATENOLOL [Concomitant]
  8. PLAVIX [Concomitant]

REACTIONS (7)
  - CARDIAC FAILURE [None]
  - CEREBROVASCULAR ACCIDENT [None]
  - CHEST PAIN [None]
  - GASTRIC HAEMORRHAGE [None]
  - GASTRIC ULCER [None]
  - MYOCARDIAL INFARCTION [None]
  - VEIN DISORDER [None]
